FAERS Safety Report 4393423-0 (Version None)
Quarter: 2004Q3

REPORT INFORMATION
  Report Type: 
  Country: None (occurrence: None)
  Receive Date: 20040709
  Receipt Date: 20040709
  Transmission Date: 20050211
  Serious: No
  Sender: FDA-Public Use
  Company Number: None

PATIENT
  Age: 62 Year
  Sex: Male
  Weight: 120.2032 kg

DRUGS (1)
  1. CRESTOR [Suspect]
     Dosage: 10MG

REACTIONS (4)
  - BACK PAIN [None]
  - HEADACHE [None]
  - PYREXIA [None]
  - RASH [None]
